FAERS Safety Report 17437765 (Version 1)
Quarter: 2020Q1

REPORT INFORMATION
  Report Type: Report from Study
  Country: None (occurrence: US)
  Receive Date: 20200219
  Receipt Date: 20200219
  Transmission Date: 20200409
  Serious: Yes (Hospitalization)
  Sender: FDA-Public Use
  Company Number: US-ABBVIE-20K-163-3281606-00

PATIENT
  Sex: Male

DRUGS (1)
  1. VENCLEXTA [Suspect]
     Active Substance: VENETOCLAX
     Indication: ACUTE MYELOID LEUKAEMIA
     Route: 048
     Dates: start: 20190729

REACTIONS (6)
  - Blood count abnormal [Unknown]
  - Weight decreased [Unknown]
  - Vomiting [Unknown]
  - Liver abscess [Unknown]
  - Nausea [Unknown]
  - Dehydration [Unknown]
